FAERS Safety Report 11393007 (Version 2)
Quarter: 2015Q3

REPORT INFORMATION
  Report Type: Spontaneous
  Country: PL (occurrence: PL)
  Receive Date: 20150818
  Receipt Date: 20150903
  Transmission Date: 20151125
  Serious: Yes (Other)
  Sender: FDA-Public Use
  Company Number: PL-REGENERON PHARMACEUTICALS, INC.-2015-11961

PATIENT

DRUGS (5)
  1. EYLEA [Suspect]
     Active Substance: AFLIBERCEPT
     Dosage: 2 MG, FOURTH INJECTION
     Route: 031
     Dates: start: 201407, end: 201407
  2. EYLEA [Suspect]
     Active Substance: AFLIBERCEPT
     Indication: MACULAR OEDEMA
     Dosage: 2 MG, LEFT EYE FIRST INJECTION
     Route: 031
     Dates: start: 201401, end: 201401
  3. EYLEA [Suspect]
     Active Substance: AFLIBERCEPT
     Indication: RETINAL VEIN OCCLUSION
     Dosage: 2 MG, LEFT EYE SECOND INJECTION
     Route: 031
     Dates: start: 201402, end: 201402
  4. EYLEA [Suspect]
     Active Substance: AFLIBERCEPT
     Dosage: 2 MG, LEFT EYE THIRD INJECTION
     Route: 031
     Dates: start: 2014, end: 2014
  5. RANIBIZUMAB [Concomitant]
     Active Substance: RANIBIZUMAB

REACTIONS (4)
  - Macular oedema [Unknown]
  - Retinal oedema [Recovering/Resolving]
  - Drug ineffective [Unknown]
  - Retinal ischaemia [Recovered/Resolved]
